FAERS Safety Report 15132913 (Version 2)
Quarter: 2018Q3

REPORT INFORMATION
  Report Type: Spontaneous
  Country: US (occurrence: US)
  Receive Date: 20180712
  Receipt Date: 20180807
  Transmission Date: 20181010
  Serious: No
  Sender: FDA-Public Use
  Company Number: US-SHIRE-US201825064

PATIENT
  Sex: Female

DRUGS (1)
  1. GATTEX [Suspect]
     Active Substance: TEDUGLUTIDE\WATER
     Indication: SHORT-BOWEL SYNDROME
     Dosage: 0.3440, 1X/DAY:QD
     Route: 065
     Dates: start: 20180308

REACTIONS (5)
  - Haemorrhoids [Unknown]
  - Injection site mass [Unknown]
  - Abdominal distension [Unknown]
  - Skin discolouration [Unknown]
  - Flatulence [Unknown]
